FAERS Safety Report 8372442-3 (Version None)
Quarter: 2012Q2

REPORT INFORMATION
  Report Type: 
  Country: None (occurrence: None)
  Receive Date: 20120521
  Receipt Date: 20120510
  Transmission Date: 20120825
  Serious: Yes (Death, Hospitalization, Other)
  Sender: FDA-Public Use
  Company Number: FR-GENZYME-RENA-1001415

PATIENT

DRUGS (5)
  1. RENVELA [Suspect]
     Dosage: 2.4 G, TID
     Route: 048
  2. ASPIRIN [Concomitant]
     Indication: PRODUCT USED FOR UNKNOWN INDICATION
     Dosage: UNK
     Route: 065
  3. LASIX [Concomitant]
     Indication: PRODUCT USED FOR UNKNOWN INDICATION
     Dosage: UNK
     Route: 065
  4. RENVELA [Suspect]
     Indication: HYPERPHOSPHATAEMIA
     Dosage: 2.4 G, TID
     Route: 048
  5. RENVELA [Suspect]
     Dosage: 2.4 G, QD
     Route: 048

REACTIONS (3)
  - NONINFECTIOUS PERITONITIS [None]
  - CHOLECYSTITIS INFECTIVE [None]
  - DRUG INEFFECTIVE [None]
